FAERS Safety Report 9062735 (Version 1)
Quarter: 2013Q1

REPORT INFORMATION
  Report Type: Spontaneous
  Country: MX (occurrence: MX)
  Receive Date: 20130213
  Receipt Date: 20130213
  Transmission Date: 20140127
  Serious: Yes (Other)
  Sender: FDA-Public Use
  Company Number: MX-PFIZER INC-2013054754

PATIENT
  Sex: Male
  Weight: 95 kg

DRUGS (5)
  1. EDRONAX [Suspect]
     Indication: DEPRESSION
     Dosage: 4 MG, 2X/DAY
     Route: 048
     Dates: start: 2005
  2. EFEXOR XR [Suspect]
     Indication: DEPRESSION
     Dosage: UNK
  3. ALTRULINE [Suspect]
     Indication: DEPRESSION
     Dosage: UNK
  4. CASODEX [Concomitant]
     Indication: PROSTATE CANCER
     Dosage: 500 MG, 1X/DAY
  5. LUCRIN [Concomitant]
     Indication: PROSTATE CANCER
     Dosage: UNK

REACTIONS (7)
  - Drug dependence [Not Recovered/Not Resolved]
  - Fall [Not Recovered/Not Resolved]
  - Gastric disorder [Unknown]
  - Nausea [Unknown]
  - Feeling abnormal [Unknown]
  - Nervousness [Unknown]
  - Drug ineffective [Unknown]
